FAERS Safety Report 8997931 (Version 1)
Quarter: 2013Q1

REPORT INFORMATION
  Report Type: Spontaneous
  Country: CN (occurrence: CN)
  Receive Date: 20130104
  Receipt Date: 20130104
  Transmission Date: 20140127
  Serious: Yes (Other)
  Sender: FDA-Public Use
  Company Number: CN-JNJFOC-20121213873

PATIENT
  Sex: 0

DRUGS (1)
  1. RISPERDAL [Suspect]
     Indication: SCHIZOPHRENIA
     Dosage: STARTED FROM 0.5-1MG/DAY AND WAS INCREASED TO 4-6MG/DAY IN 2 WEEKS
     Route: 048

REACTIONS (1)
  - Electroencephalogram abnormal [Unknown]
